FAERS Safety Report 17586735 (Version 1)
Quarter: 2020Q1

REPORT INFORMATION
  Report Type: Spontaneous
  Country: US (occurrence: US)
  Receive Date: 20200326
  Receipt Date: 20200326
  Transmission Date: 20200409
  Serious: No
  Sender: FDA-Public Use
  Company Number: US-GLAXOSMITHKLINE-US2020049601

PATIENT
  Age: 76 Year
  Sex: Female

DRUGS (1)
  1. NICODERM CQ [Suspect]
     Active Substance: NICOTINE
     Indication: SMOKING CESSATION THERAPY
     Dosage: UNK
     Dates: start: 20200318, end: 20200319

REACTIONS (6)
  - Palpitations [Unknown]
  - Application site pruritus [Unknown]
  - Application site rash [Unknown]
  - Application site swelling [Unknown]
  - Application site erythema [Unknown]
  - Application site reaction [Unknown]

NARRATIVE: CASE EVENT DATE: 20200319
